FAERS Safety Report 7880735-9 (Version None)
Quarter: 2011Q4

REPORT INFORMATION
  Report Type: 
  Country: None (occurrence: None)
  Receive Date: 20111101
  Receipt Date: 20111019
  Transmission Date: 20120403
  Serious: Yes (Other)
  Sender: FDA-Public Use
  Company Number: CA-ELI_LILLY_AND_COMPANY-CA201110004862

PATIENT
  Sex: Female

DRUGS (10)
  1. QUETIAPINE [Concomitant]
  2. EFFEXOR [Concomitant]
  3. TRAZODONE HYDROCHLORIDE [Concomitant]
  4. PROPRANOLOL [Concomitant]
  5. ZYPREXA [Suspect]
     Dosage: 10 MG, EACH EVENING
  6. LORAZEPAM [Concomitant]
  7. ZYPREXA [Suspect]
     Dosage: 15 MG, EACH EVENING
     Dates: start: 20051222
  8. ZYPREXA [Suspect]
     Dosage: 20 MG, EACH EVENING
  9. BENZTROPINE MESYLATE [Concomitant]
  10. ZUCLOPENTHIXOL [Concomitant]

REACTIONS (6)
  - BLINDNESS [None]
  - CATARACT [None]
  - HYPERGLYCAEMIA [None]
  - MACROCYTOSIS [None]
  - HEPATIC ENZYME ABNORMAL [None]
  - HEPATITIS C [None]
